FAERS Safety Report 8105036-5 (Version None)
Quarter: 2012Q1

REPORT INFORMATION
  Report Type: 
  Country: None (occurrence: None)
  Receive Date: 20120201
  Receipt Date: 20120127
  Transmission Date: 20120608
  Serious: Yes (Other)
  Sender: FDA-Public Use
  Company Number: DE-GLAXOSMITHKLINE-D0074279A

PATIENT
  Age: 76 Year
  Sex: Male

DRUGS (2)
  1. ANTIHYPERTENSIVE (UNSPECIFIED) [Concomitant]
     Indication: HYPERTENSION
     Route: 065
  2. VOTRIENT [Suspect]
     Indication: METASTATIC RENAL CELL CARCINOMA
     Dosage: 800MG PER DAY
     Route: 048
     Dates: start: 20111001

REACTIONS (7)
  - HYPERTENSIVE CRISIS [None]
  - DYSPNOEA [None]
  - TACHYCARDIA [None]
  - FEAR OF DEATH [None]
  - CHOKING SENSATION [None]
  - CHEST DISCOMFORT [None]
  - HYPERHIDROSIS [None]
